FAERS Safety Report 7110433-0 (Version None)
Quarter: 2010Q4

REPORT INFORMATION
  Report Type: 
  Country: None (occurrence: None)
  Receive Date: 20101112
  Receipt Date: 20101027
  Transmission Date: 20110411
  Serious: Yes (Hospitalization, Other)
  Sender: FDA-Public Use
  Company Number: 1-17432052

PATIENT
  Age: 48 Year
  Sex: Female
  Weight: 86.1834 kg

DRUGS (10)
  1. QUALAQUIN [Suspect]
     Indication: MUSCLE SPASMS
     Dosage: 1 AT BEDTIME, AS NEEDED, ORAL
     Route: 048
     Dates: start: 20051005, end: 20061201
  2. IBUPROFEN [Suspect]
     Indication: PAIN
     Dosage: UP TO 1200 MG/DAY, ORAL
     Route: 048
  3. ALEVE [Suspect]
     Indication: PAIN
     Dosage: 8-12 TABLETS PER DAY
  4. QUININE SULFATE [Suspect]
     Indication: MUSCLE SPASMS
     Dosage: 1 AT BEDTIME, AS NEEDED
     Dates: start: 20060417, end: 20061201
  5. FIORECET [Concomitant]
  6. ZOLOFT [Concomitant]
  7. PREVACID [Concomitant]
  8. TAMOXIFEN CITRATE [Concomitant]
  9. ADVIL [Concomitant]
  10. PRILOSEC [Concomitant]

REACTIONS (19)
  - ABDOMINAL PAIN UPPER [None]
  - ADVERSE EVENT [None]
  - ANXIETY [None]
  - CHILLS [None]
  - CHOLECYSTITIS ACUTE [None]
  - DIZZINESS [None]
  - HAEMOLYTIC URAEMIC SYNDROME [None]
  - HYPERTENSIVE ENCEPHALOPATHY [None]
  - INTERVERTEBRAL DISC PROTRUSION [None]
  - LIVER FUNCTION TEST ABNORMAL [None]
  - MIGRAINE [None]
  - PAIN [None]
  - PALPITATIONS [None]
  - RENAL FAILURE ACUTE [None]
  - ROAD TRAFFIC ACCIDENT [None]
  - SYNCOPE [None]
  - TACHYARRHYTHMIA [None]
  - THROMBOTIC THROMBOCYTOPENIC PURPURA [None]
  - THYROID DISORDER [None]
